FAERS Safety Report 7344921-9 (Version None)
Quarter: 2011Q1

REPORT INFORMATION
  Report Type: 
  Country: None (occurrence: None)
  Receive Date: 20110310
  Receipt Date: 20110301
  Transmission Date: 20110831
  Serious: Yes (Hospitalization, Disabling)
  Sender: FDA-Public Use
  Company Number: BR-ASTRAZENECA-2011SE11384

PATIENT
  Age: 84 Year
  Sex: Male
  Weight: 63 kg

DRUGS (4)
  1. ATACAND [Suspect]
     Indication: HYPERTENSION
     Route: 048
     Dates: start: 20010101, end: 20101101
  2. ATACAND [Suspect]
     Route: 048
     Dates: start: 20101101
  3. ATENOLOL(MEDLEY) [Concomitant]
     Indication: HYPERTENSION
     Dosage: QID
     Route: 048
     Dates: start: 20010101
  4. ASPIRIN [Concomitant]
     Dosage: ONCE DAILY
     Route: 048
     Dates: start: 20010101

REACTIONS (5)
  - FALL [None]
  - FEMUR FRACTURE [None]
  - BLOOD CHOLESTEROL INCREASED [None]
  - LABYRINTHITIS [None]
  - WALKING AID USER [None]
